FAERS Safety Report 8033333-0 (Version None)
Quarter: 2012Q1

REPORT INFORMATION
  Report Type: 
  Country: None (occurrence: None)
  Receive Date: 20120110
  Receipt Date: 20120103
  Transmission Date: 20120608
  Serious: Yes (Hospitalization)
  Sender: FDA-Public Use
  Company Number: DE-JNJFOC-20111200897

PATIENT
  Age: 2 Year
  Sex: Male

DRUGS (2)
  1. IMODIUM A-D EZ CHEWS [Suspect]
     Route: 048
  2. IMODIUM A-D EZ CHEWS [Suspect]
     Indication: ACCIDENTAL EXPOSURE
     Route: 048
     Dates: start: 20111201, end: 20111201

REACTIONS (1)
  - ACCIDENTAL DRUG INTAKE BY CHILD [None]
